FAERS Safety Report 8365562-0 (Version None)
Quarter: 2012Q2

REPORT INFORMATION
  Report Type: 
  Country: None (occurrence: None)
  Receive Date: 20120516
  Receipt Date: 20120512
  Transmission Date: 20120825
  Serious: Yes (Other)
  Sender: FDA-Public Use
  Company Number: US-BAYER-2012-001170

PATIENT
  Age: 56 Year
  Sex: Female

DRUGS (12)
  1. MAGNEVIST [Suspect]
     Indication: RENAL MASS
  2. SENSIPAR [Concomitant]
     Indication: DIALYSIS
     Dosage: 90 MG, QD
  3. ATENOLOL [Concomitant]
  4. OPTIMARK [Suspect]
     Indication: MUSCULAR WEAKNESS
  5. PREDNISONE TAB [Concomitant]
  6. OPTIMARK [Suspect]
     Indication: DISORIENTATION
  7. OPTIMARK [Suspect]
     Indication: HEADACHE
  8. PROGRAF [Concomitant]
  9. OPTIMARK [Suspect]
     Indication: NUCLEAR MAGNETIC RESONANCE IMAGING
     Dosage: 15 ML, ONCE
     Route: 042
     Dates: start: 20060602, end: 20060602
  10. RENVELA [Concomitant]
     Indication: DIALYSIS
     Dosage: QID WITH MEALS
  11. MAGNEVIST [Suspect]
     Indication: NUCLEAR MAGNETIC RESONANCE IMAGING
     Dosage: UNK
     Route: 042
     Dates: start: 20040521, end: 20040521
  12. LANTUS [Concomitant]
     Indication: DIABETES MELLITUS
     Dosage: 20 U, QD
     Dates: start: 20050401

REACTIONS (27)
  - JOINT RANGE OF MOTION DECREASED [None]
  - SKIN HYPERPIGMENTATION [None]
  - ANHEDONIA [None]
  - PAIN [None]
  - NEPHROGENIC SYSTEMIC FIBROSIS [None]
  - MOBILITY DECREASED [None]
  - MUSCULAR WEAKNESS [None]
  - EPHELIDES [None]
  - ANXIETY [None]
  - INJURY [None]
  - EMOTIONAL DISTRESS [None]
  - GENERAL PHYSICAL HEALTH DETERIORATION [None]
  - OEDEMA PERIPHERAL [None]
  - DERMAL CYST [None]
  - JOINT CONTRACTURE [None]
  - FIBROSIS [None]
  - DEFORMITY [None]
  - DRY SKIN [None]
  - SKIN TIGHTNESS [None]
  - DEPRESSION [None]
  - SKIN INDURATION [None]
  - SCAR [None]
  - ARTHRALGIA [None]
  - MUSCULOSKELETAL STIFFNESS [None]
  - EXTREMITY CONTRACTURE [None]
  - SKIN DISORDER [None]
  - ABASIA [None]
